FAERS Safety Report 24529980 (Version 3)
Quarter: 2024Q4

REPORT INFORMATION
  Report Type: Spontaneous
  Country: US (occurrence: US)
  Receive Date: 20241021
  Receipt Date: 20241211
  Transmission Date: 20250114
  Serious: No
  Sender: PFIZER
  Company Number: US-PFIZER INC-PV202400135494

PATIENT
  Age: 60 Year
  Sex: Female
  Weight: 79.7 kg

DRUGS (1)
  1. IBRANCE [Suspect]
     Active Substance: PALBOCICLIB
     Indication: Breast cancer female
     Dosage: 125 MG, DAY 1-21, THEN OFF 7 DAYS
     Route: 048
     Dates: start: 20240831

REACTIONS (4)
  - Fatigue [Unknown]
  - Renal function test abnormal [Unknown]
  - Liver function test increased [Unknown]
  - White blood cell count decreased [Unknown]

NARRATIVE: CASE EVENT DATE: 20240101
